FAERS Safety Report 7967399-0 (Version None)
Quarter: 2011Q4

REPORT INFORMATION
  Report Type: 
  Country: None (occurrence: None)
  Receive Date: 20111209
  Receipt Date: 20111205
  Transmission Date: 20120403
  Serious: Yes (Disabling, Other)
  Sender: FDA-Public Use
  Company Number: US-PFIZER INC-2011296785

PATIENT
  Sex: Female
  Weight: 205.9 kg

DRUGS (7)
  1. LYRICA [Suspect]
     Indication: NERVE INJURY
     Dosage: 150 MG, 2X/DAY
     Route: 048
     Dates: start: 20070101
  2. LYRICA [Suspect]
     Indication: THERMAL BURN
  3. PLAVIX [Concomitant]
     Indication: CEREBROVASCULAR ACCIDENT
     Dosage: UNK
  4. LANTUS [Concomitant]
     Indication: DIABETES MELLITUS
     Dosage: UNK
  5. SPIRONOLACTONE [Concomitant]
     Indication: CEREBROVASCULAR ACCIDENT
     Dosage: UNK
  6. METOPROLOL [Concomitant]
     Indication: CEREBROVASCULAR ACCIDENT
     Dosage: UNK
  7. ZOCOR [Concomitant]
     Indication: CEREBROVASCULAR ACCIDENT
     Dosage: UNK

REACTIONS (4)
  - BLOOD GLUCOSE INCREASED [None]
  - BLOOD IRON DECREASED [None]
  - WEIGHT INCREASED [None]
  - HEMIPARESIS [None]
